FAERS Safety Report 14901198 (Version 3)
Quarter: 2018Q2

REPORT INFORMATION
  Report Type: Spontaneous
  Country: DE (occurrence: DE)
  Receive Date: 20180516
  Receipt Date: 20180611
  Transmission Date: 20180711
  Serious: Yes (Other)
  Sender: FDA-Public Use
  Company Number: DE-PFIZER INC-2018195594

PATIENT
  Age: 45 Year
  Sex: Female
  Weight: 68 kg

DRUGS (2)
  1. IBUPROFEN. [Suspect]
     Active Substance: IBUPROFEN
     Dosage: 400 MG, AS NEEDED
     Route: 048
  2. FOSTER [Concomitant]
     Active Substance: BECLOMETHASONE\FORMOTEROL
     Dosage: 4 DF, 1X/DAY, (2-0-2-0)
     Route: 055

REACTIONS (5)
  - Rash [Unknown]
  - Headache [Unknown]
  - Eosinophilia [Unknown]
  - General physical health deterioration [Unknown]
  - Thrombocytopenia [Unknown]
